FAERS Safety Report 23506185 (Version 1)
Quarter: 2024Q1

REPORT INFORMATION
  Report Type: Spontaneous
  Country: BE (occurrence: JP)
  Receive Date: 20240209
  Receipt Date: 20240209
  Transmission Date: 20240409
  Serious: Yes (Hospitalization)
  Sender: FDA-Public Use
  Company Number: None

PATIENT
  Age: 91 Year
  Sex: Male

DRUGS (9)
  1. CETIRIZINE HYDROCHLORIDE [Suspect]
     Active Substance: CETIRIZINE HYDROCHLORIDE
     Indication: Dermatitis allergic
     Dosage: DAILY DOSE:10MG-FREQ:DAILY
     Route: 048
     Dates: start: 20000321
  2. AZELASTINE HYDROCHLORIDE [Suspect]
     Active Substance: AZELASTINE HYDROCHLORIDE
     Indication: Pruritus
     Dosage: DAILY DOSE:2MG
     Route: 048
     Dates: end: 20000510
  3. OXATOMIDE [Suspect]
     Active Substance: OXATOMIDE
     Indication: Pruritus
     Dosage: DAILY DOSE:60MG
     Route: 048
     Dates: end: 20000510
  4. NIFEDIPINE [Concomitant]
     Active Substance: NIFEDIPINE
     Indication: Angina pectoris
     Route: 048
  5. NIFEDIPINE [Concomitant]
     Active Substance: NIFEDIPINE
     Indication: Hypertension
     Route: 048
  6. VINPOCETINE [Concomitant]
     Active Substance: VINPOCETINE
     Indication: Cerebral infarction
     Route: 048
  7. MOSAPRIDE CITRATE [Concomitant]
     Active Substance: MOSAPRIDE CITRATE
     Indication: Chronic gastritis
     Route: 048
  8. BIODIASTASE [Concomitant]
     Indication: Product used for unknown indication
     Route: 048
  9. LISINOPRIL [Concomitant]
     Active Substance: LISINOPRIL
     Indication: Hypertension
     Route: 048

REACTIONS (6)
  - Oedema [Recovered/Resolved]
  - Balance disorder [Recovered/Resolved]
  - Nephrotic syndrome [Recovered/Resolved]
  - Blood lactate dehydrogenase increased [Recovered/Resolved]
  - Blood alkaline phosphatase increased [Recovered/Resolved]
  - Pruritus [Recovered/Resolved]

NARRATIVE: CASE EVENT DATE: 20000101
